FAERS Safety Report 8830357 (Version 1)
Quarter: 2012Q4

REPORT INFORMATION
  Report Type: 
  Country: CH (occurrence: CH)
  Receive Date: 20121009
  Receipt Date: 20121009
  Transmission Date: 20130627
  Serious: Yes (Other)
  Sender: FDA-Public Use
  Company Number: CH-009507513-1210CHE001640

PATIENT
  Age: 32 Year
  Sex: Female

DRUGS (4)
  1. NUVARING [Suspect]
     Indication: CONTRACEPTION
     Dosage: 11.7/2.7 mg, UNK
     Route: 067
     Dates: start: 2010
  2. NUVARING [Suspect]
     Dosage: 11.7/2.7 mg, UNK
     Route: 067
     Dates: start: 201201, end: 201202
  3. NUVARING [Suspect]
     Dosage: UNK
  4. QLAIRA [Suspect]
     Indication: CONTRACEPTION
     Dosage: UNK
     Route: 048
     Dates: start: 201202, end: 20120628

REACTIONS (1)
  - Eczema [Recovered/Resolved]
